FAERS Safety Report 12181640 (Version 1)
Quarter: 2016Q1

REPORT INFORMATION
  Report Type: Spontaneous
  Country: NZ (occurrence: NZ)
  Receive Date: 20160315
  Receipt Date: 20160315
  Transmission Date: 20160526
  Serious: Yes (Death)
  Sender: FDA-Public Use
  Company Number: NZ-ASTRAZENECA-2016SE25830

PATIENT
  Age: 24880 Day
  Sex: Female

DRUGS (5)
  1. TICAGRELOR [Suspect]
     Active Substance: TICAGRELOR
     Indication: ANGINA PECTORIS
     Route: 048
     Dates: start: 20140518, end: 20140519
  2. HEPARIN [Suspect]
     Active Substance: HEPARIN SODIUM
     Indication: ANGINA PECTORIS
     Route: 058
     Dates: start: 20140518, end: 20140519
  3. METFORMIN [Concomitant]
     Active Substance: METFORMIN HYDROCHLORIDE
     Dosage: DAILY
     Route: 048
     Dates: end: 20140525
  4. ACETYLSALICYLIC ACID [Suspect]
     Active Substance: ASPIRIN
     Dosage: DAILY
     Route: 048
     Dates: end: 201405
  5. SIMVASTATIN. [Concomitant]
     Active Substance: SIMVASTATIN
     Dosage: DAILY
     Route: 048
     Dates: end: 20140525

REACTIONS (3)
  - Subarachnoid haemorrhage [Fatal]
  - Medication error [Fatal]
  - Spinal cord haematoma [Fatal]

NARRATIVE: CASE EVENT DATE: 20140519
